FAERS Safety Report 19913177 (Version 1)
Quarter: 2021Q4

REPORT INFORMATION
  Report Type: Spontaneous
  Country: IT (occurrence: IT)
  Receive Date: 20211004
  Receipt Date: 20211004
  Transmission Date: 20220303
  Serious: Yes (Hospitalization, Other)
  Sender: FDA-Public Use
  Company Number: IT-ABBVIE-21K-083-4102945-00

PATIENT
  Age: 51 Year
  Sex: Female

DRUGS (4)
  1. VALPROATE SODIUM [Suspect]
     Active Substance: VALPROATE SODIUM
     Indication: Intentional product use issue
     Route: 048
     Dates: start: 20180912, end: 20180912
  2. QUETIAPINE FUMARATE [Suspect]
     Active Substance: QUETIAPINE FUMARATE
     Indication: Intentional product use issue
     Dosage: TOTAL
     Route: 048
     Dates: start: 20180912, end: 20180912
  3. BROMAZEPAM [Suspect]
     Active Substance: BROMAZEPAM
     Indication: Intentional product use issue
     Dosage: TOTAL
     Route: 048
     Dates: start: 20180912, end: 20180912
  4. QUETIAPINE FUMARATE [Suspect]
     Active Substance: QUETIAPINE FUMARATE
     Indication: Intentional product use issue
     Dosage: TOTAL
     Route: 048
     Dates: start: 20180912, end: 20180912

REACTIONS (3)
  - Apraxia [Recovered/Resolved]
  - Sopor [Recovered/Resolved]
  - Loss of consciousness [Recovered/Resolved]

NARRATIVE: CASE EVENT DATE: 20210912
